FAERS Safety Report 6104802-5 (Version None)
Quarter: 2009Q1

REPORT INFORMATION
  Report Type: 
  Country: None (occurrence: None)
  Receive Date: 20090306
  Receipt Date: 20090226
  Transmission Date: 20090719
  Serious: Yes (Other)
  Sender: FDA-Public Use
  Company Number: PHHY2009DE04084

PATIENT
  Sex: Male

DRUGS (3)
  1. EXELON [Suspect]
     Indication: DEMENTIA
     Dosage: 3 TO 4.5 MG DAILY
     Route: 048
     Dates: start: 20080101
  2. EXELON [Suspect]
     Indication: PARKINSON'S DISEASE
  3. MARCUMAR [Concomitant]
     Route: 048

REACTIONS (5)
  - AGGRESSION [None]
  - DRUG INEFFECTIVE [None]
  - HYPERSEXUALITY [None]
  - NAUSEA [None]
  - WEIGHT DECREASED [None]
